FAERS Safety Report 21044348 (Version 1)
Quarter: 2022Q3

REPORT INFORMATION
  Report Type: Spontaneous
  Country: US (occurrence: US)
  Receive Date: 20220705
  Receipt Date: 20220705
  Transmission Date: 20221027
  Serious: No
  Sender: FDA-Public Use
  Company Number: US-PADAGIS-21US010239

PATIENT

DRUGS (2)
  1. FERROUS GLUCONATE [Suspect]
     Active Substance: FERROUS GLUCONATE
     Indication: Platelet count decreased
     Dosage: 2 DF, SINGLE
     Route: 048
     Dates: start: 20210722, end: 20210722
  2. FERROUS GLUCONATE [Suspect]
     Active Substance: FERROUS GLUCONATE
     Indication: Red blood cell count decreased

REACTIONS (3)
  - Diarrhoea [None]
  - Abdominal pain upper [None]
  - Incorrect dose administered [Recovered/Resolved]

NARRATIVE: CASE EVENT DATE: 20210722
